FAERS Safety Report 16889707 (Version 1)
Quarter: 2019Q4

REPORT INFORMATION
  Report Type: Spontaneous
  Country: US (occurrence: US)
  Receive Date: 20190812
  Receipt Date: 20190812
  Transmission Date: 20200122
  Serious: No
  Sender: FDA-Public Use
  Company Number: None

PATIENT
  Age: 49 Year
  Sex: Female

DRUGS (1)
  1. XELJANZ XR [Suspect]
     Active Substance: TOFACITINIB CITRATE
     Indication: RHEUMATOID ARTHRITIS
     Route: 048
     Dates: start: 20190605, end: 20190718

REACTIONS (4)
  - Rash [None]
  - Rash pruritic [None]
  - Drug hypersensitivity [None]
  - Urticaria [None]

NARRATIVE: CASE EVENT DATE: 20190713
